FAERS Safety Report 6492113-8 (Version None)
Quarter: 2009Q4

REPORT INFORMATION
  Report Type: 
  Country: None (occurrence: None)
  Receive Date: 20091125
  Receipt Date: 20090521
  Transmission Date: 20100525
  Serious: Yes (Hospitalization, Other)
  Sender: FDA-Public Use
  Company Number: 2009BH008943

PATIENT
  Age: 58 Year
  Sex: Male

DRUGS (10)
  1. DIANEAL [Suspect]
     Indication: PERITONEAL DIALYSIS
     Dosage: 10 L; EVERY DAY; IP
     Route: 033
     Dates: start: 20081013, end: 20090214
  2. LOVASTATIN [Concomitant]
  3. DOXAZOSIN [Concomitant]
  4. ALLOPURINOL [Concomitant]
  5. RANITIDINE [Concomitant]
  6. RENACAPS [Concomitant]
  7. HECTOROL [Concomitant]
  8. PHOSLO [Concomitant]
  9. EPOGEN [Concomitant]
  10. TADALAFIL [Concomitant]

REACTIONS (3)
  - DEVICE RELATED INFECTION [None]
  - PERITONEAL DIALYSIS COMPLICATION [None]
  - PERITONITIS [None]
